FAERS Safety Report 5954008-5 (Version None)
Quarter: 2008Q4

REPORT INFORMATION
  Report Type: 
  Country: None (occurrence: None)
  Receive Date: 20081114
  Receipt Date: 20081106
  Transmission Date: 20090506
  Serious: Yes (Hospitalization)
  Sender: FDA-Public Use
  Company Number: US-AMGEN-QUU316093

PATIENT
  Sex: Female

DRUGS (1)
  1. ENBREL [Suspect]
     Indication: ANKYLOSING SPONDYLITIS
     Route: 058
     Dates: start: 20031101

REACTIONS (5)
  - ANKYLOSING SPONDYLITIS [None]
  - ARTHRALGIA [None]
  - BIPOLAR DISORDER [None]
  - DENTAL CARIES [None]
  - NASOPHARYNGITIS [None]
